FAERS Safety Report 5098046-6 (Version None)
Quarter: 2006Q3

REPORT INFORMATION
  Report Type: 
  Country: None (occurrence: None)
  Receive Date: 20060906
  Receipt Date: 20060329
  Transmission Date: 20061208
  Serious: No
  Sender: FDA-Public Use
  Company Number: US-GLAXOSMITHKLINE-A0599536A

PATIENT
  Age: 59 Year
  Sex: Male

DRUGS (5)
  1. REQUIP [Suspect]
     Dosage: 4MG PER DAY
     Route: 048
  2. NEURONTIN [Concomitant]
  3. LOPID [Concomitant]
  4. ZETIA [Concomitant]
  5. CLONIDINE [Concomitant]

REACTIONS (3)
  - ABNORMAL DREAMS [None]
  - HYPERHIDROSIS [None]
  - NAUSEA [None]
